FAERS Safety Report 7222186-6 (Version None)
Quarter: 2011Q1

REPORT INFORMATION
  Report Type: 
  Country: None (occurrence: None)
  Receive Date: 20110104
  Receipt Date: 20101220
  Transmission Date: 20110831
  Serious: Yes (Death)
  Sender: FDA-Public Use
  Company Number: 011162

PATIENT
  Age: 78 Year
  Sex: Male

DRUGS (7)
  1. ATORVASTATIN (ATORVASTATIN) [Concomitant]
  2. DEXAMETHASONE [Concomitant]
  3. SAMSCA [Suspect]
     Indication: INAPPROPRIATE ANTIDIURETIC HORMONE SECRETION
  4. SAMSCA [Suspect]
     Indication: HYPONATRAEMIA
  5. AMOXICILLIN W CLAVULANIC ACID (AMOXICILLIN, CLAVULANIC ACID) [Concomitant]
  6. RAMIPRIL [Concomitant]
  7. DIGOXIN [Concomitant]

REACTIONS (1)
  - PANCREATIC CARCINOMA METASTATIC [None]
